FAERS Safety Report 10038531 (Version 1)
Quarter: 2014Q1

REPORT INFORMATION
  Report Type: Spontaneous
  Country: US (occurrence: None)
  Receive Date: 20140306
  Receipt Date: 20140306
  Transmission Date: 20141002
  Serious: Yes (Disabling, Other)
  Sender: FDA-Public Use
  Company Number: 163-21880-13072881

PATIENT
  Age: 55 Year
  Sex: Female
  Weight: 77.11 kg

DRUGS (14)
  1. REVLIMID(LENALIDOMIDE)(25 MILLIGRAM, CAPSULES) [Suspect]
     Indication: PLASMA CELL MYELOMA
     Route: 048
     Dates: start: 20120201
  2. AMITRIPTYLINE HCL (AMITRIPTYLINE HYDROCHLORIDE) [Concomitant]
  3. ATROVASTATIN CALCIUM (ATORVASTATIN CALCIUM( [Concomitant]
  4. VITAMIN D2(ERGOCALCIFEROL) [Concomitant]
  5. OXYCONTIN (OXYCODONE HYDROCHLORIDE)(TABLETS) [Concomitant]
  6. MVI(MVI)(CAPSULES) [Concomitant]
  7. FOLIC ACID (FOLIC ACID)(CAPSULES) [Concomitant]
  8. TRIMTERENE-HCTZ(TRIAMTERENE) [Concomitant]
  9. VELCADE(BORTEZOMIB) [Concomitant]
  10. DEXAMETHASONE(DEXAMETHASONE) [Concomitant]
  11. BISOPROLOL/HCTZ/(BISELECT) [Concomitant]
  12. RANITIDINE(RANITIDINE) [Concomitant]
  13. ZOMETA(ZOLEDRONIC ACID) [Concomitant]
  14. CALCIUM (CALCIUM) [Concomitant]

REACTIONS (3)
  - Fatigue [None]
  - Insomnia [None]
  - Leukopenia [None]
